FAERS Safety Report 25605816 (Version 1)
Quarter: 2025Q3

REPORT INFORMATION
  Report Type: Spontaneous
  Country: US (occurrence: None)
  Receive Date: 20250725
  Receipt Date: 20250725
  Transmission Date: 20251021
  Serious: No
  Sender: ACS DOBFAR
  Company Number: US-ACS-20250375

PATIENT
  Age: 32 Year
  Sex: Female

DRUGS (2)
  1. CEFEPIME [Suspect]
     Active Substance: CEFEPIME HYDROCHLORIDE
  2. DUPIXENT [Suspect]
     Active Substance: DUPILUMAB
     Indication: Dermatitis atopic
     Dosage: SINGLE DOSE PRE-FILLED PEN
     Route: 058
     Dates: start: 202505

REACTIONS (2)
  - Drug hypersensitivity [Unknown]
  - Allergy to metals [Unknown]

NARRATIVE: CASE EVENT DATE: 20250101
